FAERS Safety Report 5672288-0 (Version None)
Quarter: 2008Q1

REPORT INFORMATION
  Report Type: 
  Country: None (occurrence: None)
  Receive Date: 20080319
  Receipt Date: 20080311
  Transmission Date: 20080703
  Serious: Yes (Other)
  Sender: FDA-Public Use
  Company Number: PHBS2008ES02555

PATIENT
  Age: 37 Year
  Sex: Female

DRUGS (8)
  1. CARBAMAZEPINE [Suspect]
     Indication: EPILEPSY
     Dosage: 800 MG AT BREAKFAST, 400 MG AT  LUNCHTIME
  2. LAMOTRIGINE [Suspect]
     Dosage: 100 MG, Q12H
  3. PHENOBARBITAL TAB [Suspect]
     Dosage: 100 MG, Q12H
  4. LEVETIRACETAM [Concomitant]
     Dosage: 1000 MG, BID
  5. PRAVASTATIN [Concomitant]
     Indication: DYSLIPIDAEMIA
     Dosage: 10 MG, UNK
  6. ALPRAZOLAM [Concomitant]
     Dosage: 2 MG, Q8H
  7. MIRTAZAPINE [Concomitant]
     Dosage: 1 TAB AT NIGHT
  8. VENLAFAXINE HCL [Suspect]
     Dosage: 150 MG/DAY

REACTIONS (13)
  - AFFECT LABILITY [None]
  - BLOOD CHLORIDE ABNORMAL [None]
  - CONFUSIONAL STATE [None]
  - DEPRESSION [None]
  - HYPERHIDROSIS [None]
  - HYPERTONIA [None]
  - HYPONATRAEMIA [None]
  - INAPPROPRIATE ANTIDIURETIC HORMONE SECRETION [None]
  - LEUKOCYTOSIS [None]
  - NEUTROPHILIA [None]
  - PALLOR [None]
  - PERIPHERAL COLDNESS [None]
  - SYNCOPE [None]
